FAERS Safety Report 18319974 (Version 8)
Quarter: 2021Q1

REPORT INFORMATION
  Report Type: Spontaneous
  Country: ZA (occurrence: ZA)
  Receive Date: 20200929
  Receipt Date: 20210210
  Transmission Date: 20210419
  Serious: No
  Sender: FDA-Public Use
  Company Number: ZA-CELLTRION INC.-2020ZA027135

PATIENT

DRUGS (7)
  1. NEXMEZOL [Concomitant]
     Active Substance: ESOMEPRAZOLE MAGNESIUM
     Indication: COLITIS ULCERATIVE
     Dosage: 40 MG, DAILY
     Route: 048
  2. REMSIMA [Suspect]
     Active Substance: INFLIXIMAB
     Dosage: 450 MG EVERY 6 WEEKS, 25TH INFUSION
     Route: 042
     Dates: start: 20201009
  3. REMSIMA [Suspect]
     Active Substance: INFLIXIMAB
     Dosage: 450 MG
     Route: 042
     Dates: start: 20201127, end: 20201127
  4. FOLATE [Concomitant]
     Active Substance: FOLATE SODIUM
     Indication: COLITIS ULCERATIVE
     Dosage: 5 MG, DAILY
     Route: 048
  5. METHOTREXATE. [Concomitant]
     Active Substance: METHOTREXATE
     Indication: COLITIS ULCERATIVE
     Dosage: 15 UG, DAILY
     Route: 048
  6. METHOTREXATE. [Concomitant]
     Active Substance: METHOTREXATE
     Dosage: 5 UG, DAILY
     Route: 048
  7. REMSIMA [Suspect]
     Active Substance: INFLIXIMAB
     Indication: COLITIS ULCERATIVE
     Dosage: 450 MG (PATIENT IS ON 6 WEEKLY TREATMENTS)
     Route: 042
     Dates: start: 20200828

REACTIONS (19)
  - Muscle spasms [Recovered/Resolved with Sequelae]
  - Muscle spasms [Recovered/Resolved]
  - Hyperhidrosis [Recovered/Resolved]
  - Depressed mood [Unknown]
  - Gastrointestinal motility disorder [Unknown]
  - Injury [Unknown]
  - Nausea [Recovered/Resolved]
  - Flatulence [Unknown]
  - Feeling cold [Recovered/Resolved]
  - Flushing [Unknown]
  - Weight abnormal [Unknown]
  - Arthralgia [Recovered/Resolved with Sequelae]
  - Peripheral coldness [Recovered/Resolved]
  - Off label use [Unknown]
  - Tension [Unknown]
  - Fatigue [Unknown]
  - Loss of personal independence in daily activities [Unknown]
  - Abdominal pain [Unknown]
  - Anger [Unknown]

NARRATIVE: CASE EVENT DATE: 20200828
